FAERS Safety Report 4790351-3 (Version None)
Quarter: 2005Q4

REPORT INFORMATION
  Report Type: 
  Country: None (occurrence: None)
  Receive Date: 20051006
  Receipt Date: 20050819
  Transmission Date: 20060501
  Serious: Yes (Death, Life-Threatening, Hospitalization)
  Sender: FDA-Public Use
  Company Number: PHRM2005FR02311

PATIENT
  Age: 80 Year
  Sex: Male

DRUGS (3)
  1. TENORMIN [Concomitant]
     Indication: ESSENTIAL HYPERTENSION
     Dosage: UNK, UNK
     Route: 048
  2. NISIS [Suspect]
     Indication: HYPERTENSION
     Dosage: 40 MG, QD
     Route: 048
     Dates: end: 20050621
  3. AMAREL [Suspect]
     Indication: DIABETES MELLITUS NON-INSULIN-DEPENDENT
     Route: 048
     Dates: end: 20050621

REACTIONS (20)
  - ABDOMINAL CAVITY DRAINAGE [None]
  - ABDOMINAL PAIN UPPER [None]
  - ASPARTATE AMINOTRANSFERASE INCREASED [None]
  - BLOOD AMYLASE INCREASED [None]
  - BLOOD BILIRUBIN INCREASED [None]
  - BLOOD CREATININE INCREASED [None]
  - CATHETER RELATED INFECTION [None]
  - DUODENAL STENOSIS [None]
  - HAEMODIALYSIS [None]
  - INFECTION [None]
  - LIPASE INCREASED [None]
  - LUNG INFECTION PSEUDOMONAL [None]
  - MULTI-ORGAN FAILURE [None]
  - NAUSEA [None]
  - PANCREATITIS NECROTISING [None]
  - PARENTERAL NUTRITION [None]
  - RENAL FAILURE [None]
  - SEPTIC SHOCK [None]
  - TRACHEOSTOMY [None]
  - VOMITING [None]
